FAERS Safety Report 22175603 (Version 1)
Quarter: 2023Q2

REPORT INFORMATION
  Report Type: Spontaneous
  Country: PT (occurrence: PT)
  Receive Date: 20230405
  Receipt Date: 20230405
  Transmission Date: 20230722
  Serious: Yes (Other)
  Sender: FDA-Public Use
  Company Number: PT-VIIV HEALTHCARE ULC-PT2023EME041832

PATIENT
  Age: 36 Year
  Sex: Male

DRUGS (4)
  1. ABACAVIR SULFATE\LAMIVUDINE [Suspect]
     Active Substance: ABACAVIR SULFATE\LAMIVUDINE
     Indication: HIV infection
     Dosage: UNK
     Route: 065
     Dates: start: 20151101
  2. REYATAZ [Suspect]
     Active Substance: ATAZANAVIR SULFATE
     Indication: HIV infection
     Dosage: UNK
     Route: 065
     Dates: start: 20151101
  3. TRUVADA [Suspect]
     Active Substance: EMTRICITABINE\TENOFOVIR DISOPROXIL FUMARATE
     Indication: HIV infection
     Dosage: UNK
     Route: 065
     Dates: start: 20151101
  4. ISENTRESS [Suspect]
     Active Substance: RALTEGRAVIR POTASSIUM
     Indication: HIV infection
     Dosage: UNK
     Route: 065
     Dates: start: 20151101

REACTIONS (4)
  - Pathogen resistance [Unknown]
  - Treatment noncompliance [Unknown]
  - Viral mutation identified [Unknown]
  - Virologic failure [Unknown]

NARRATIVE: CASE EVENT DATE: 20190601
